FAERS Safety Report 11170730 (Version 1)
Quarter: 2015Q2

REPORT INFORMATION
  Report Type: Spontaneous
  Country: US (occurrence: None)
  Receive Date: 20150604
  Receipt Date: 20150604
  Transmission Date: 20150821
  Serious: Yes (Hospitalization)
  Sender: FDA-Public Use
  Company Number: None

PATIENT
  Age: 59 Year
  Sex: Female
  Weight: 72.58 kg

DRUGS (4)
  1. METFORMIN [Concomitant]
     Active Substance: METFORMIN HYDROCHLORIDE
  2. EFFEXOR [Suspect]
     Active Substance: VENLAFAXINE HYDROCHLORIDE
     Indication: DEPRESSION
     Dosage: 18 DAYS?ONE, ONCE DAILY, TAKEN BY MOUTH
     Route: 048
  3. LEVETHRAXINE [Concomitant]
  4. METROPOL [Concomitant]

REACTIONS (2)
  - Adverse reaction [None]
  - Hospitalisation [None]

NARRATIVE: CASE EVENT DATE: 20150525
